FAERS Safety Report 16585351 (Version 1)
Quarter: 2019Q3

REPORT INFORMATION
  Report Type: Spontaneous
  Country: US (occurrence: US)
  Receive Date: 20190717
  Receipt Date: 20190717
  Transmission Date: 20191004
  Serious: Yes (Hospitalization, Other)
  Sender: FDA-Public Use
  Company Number: US-TAKEDA-2019TUS043570

PATIENT
  Sex: Male
  Weight: 35 kg

DRUGS (3)
  1. VELCADE [Suspect]
     Active Substance: BORTEZOMIB
     Indication: GLOMERULONEPHRITIS MEMBRANOPROLIFERATIVE
     Dosage: 1.3 MILLIGRAM/SQ. METER
     Route: 042
     Dates: start: 20190426
  2. VELCADE [Suspect]
     Active Substance: BORTEZOMIB
     Dosage: 1 MILLIGRAM/SQ. METER
     Route: 058
     Dates: end: 20190708
  3. VELCADE [Suspect]
     Active Substance: BORTEZOMIB
     Dosage: 1 MILLIGRAM/SQ. METER
     Route: 042

REACTIONS (5)
  - Off label use [Unknown]
  - Retinal haemorrhage [Unknown]
  - Neutropenia [Unknown]
  - Headache [Unknown]
  - Papilloedema [Unknown]

NARRATIVE: CASE EVENT DATE: 20190426
